FAERS Safety Report 9343216 (Version 1)
Quarter: 2013Q2

REPORT INFORMATION
  Report Type: Spontaneous
  Country: CN (occurrence: CN)
  Receive Date: 20130611
  Receipt Date: 20130611
  Transmission Date: 20140414
  Serious: Yes (Other)
  Sender: FDA-Public Use
  Company Number: CN-ASTRAZENECA-2013SE41522

PATIENT
  Age: 40 Year
  Sex: Male

DRUGS (2)
  1. RHINOCORT [Suspect]
     Route: 045
     Dates: start: 20120901, end: 20121107
  2. ENTECAVIR [Concomitant]
     Indication: RHINITIS

REACTIONS (1)
  - Liver function test abnormal [Unknown]
